FAERS Safety Report 4774050-X (Version None)
Quarter: 2005Q3

REPORT INFORMATION
  Report Type: 
  Country: None (occurrence: None)
  Receive Date: 20050920
  Receipt Date: 20050725
  Transmission Date: 20060218
  Serious: Yes (Hospitalization)
  Sender: FDA-Public Use
  Company Number: AU-MERCK-0508AUS00009

PATIENT
  Sex: Female

DRUGS (22)
  1. FOSAMAX [Suspect]
     Indication: OSTEOPOROSIS
     Route: 048
     Dates: start: 20040801
  2. FOSAMAX [Suspect]
     Route: 048
     Dates: start: 20000101, end: 20040801
  3. INSULIN, NEUTRAL [Concomitant]
     Route: 065
  4. INSULIN HUMAN, ISOPHANE [Concomitant]
     Route: 065
  5. OXYCODONE HYDROCHLORIDE [Concomitant]
     Route: 065
  6. TRAMADOL HYDROCHLORIDE [Concomitant]
     Route: 065
  7. OXYCODONE HYDROCHLORIDE [Concomitant]
     Route: 065
  8. HYDROCHLOROTHIAZIDE AND IRBESARTAN [Concomitant]
     Route: 065
  9. PROPRANOLOL HYDROCHLORIDE [Concomitant]
     Route: 065
  10. RAMIPRIL [Concomitant]
     Route: 065
  11. MELOXICAM [Concomitant]
     Route: 065
  12. AZATHIOPRINE [Concomitant]
     Route: 065
  13. DOXEPIN HYDROCHLORIDE [Concomitant]
     Route: 065
  14. FLUCONAZOLE [Concomitant]
     Route: 065
  15. HYDROXYCHLOROQUINE SULFATE [Concomitant]
     Route: 065
  16. CALCIUM CARBONATE [Concomitant]
     Route: 065
  17. ATORVASTATIN CALCIUM [Concomitant]
     Route: 065
  18. OMEPRAZOLE MAGNESIUM [Concomitant]
     Route: 065
  19. ESTRADIOL VALERATE [Concomitant]
     Route: 065
  20. CYANOCOBALAMIN [Concomitant]
     Route: 065
  21. MEDROXYPROGESTERONE ACETATE [Concomitant]
     Route: 065
  22. PREDNISOLONE [Concomitant]
     Route: 065

REACTIONS (2)
  - HIP FRACTURE [None]
  - RIB FRACTURE [None]
